FAERS Safety Report 8457256-8 (Version None)
Quarter: 2012Q2

REPORT INFORMATION
  Report Type: 
  Country: None (occurrence: None)
  Receive Date: 20120621
  Receipt Date: 20120608
  Transmission Date: 20120825
  Serious: Yes (Hospitalization)
  Sender: FDA-Public Use
  Company Number: IT-BAYER-2012-057217

PATIENT
  Age: 60 Year
  Sex: Female

DRUGS (1)
  1. ASPIRIN [Suspect]
     Indication: PROPHYLAXIS
     Dosage: 100 MG, QD
     Route: 048
     Dates: start: 20100701, end: 20120603

REACTIONS (4)
  - FAECES DISCOLOURED [None]
  - PRESYNCOPE [None]
  - VOMITING [None]
  - DUODENAL ULCER [None]
